FAERS Safety Report 13430713 (Version 1)
Quarter: 2017Q2

REPORT INFORMATION
  Report Type: Spontaneous
  Country: US (occurrence: US)
  Receive Date: 20170411
  Receipt Date: 20170411
  Transmission Date: 20170830
  Serious: Yes (Hospitalization)
  Sender: FDA-Public Use
  Company Number: None

PATIENT
  Age: 67 Year
  Sex: Male
  Weight: 103.5 kg

DRUGS (1)
  1. WARFARIN [Suspect]
     Active Substance: WARFARIN
     Dates: start: 20160823

REACTIONS (3)
  - Gastrointestinal haemorrhage [None]
  - Mitral valve incompetence [None]
  - International normalised ratio decreased [None]

NARRATIVE: CASE EVENT DATE: 20160823
